FAERS Safety Report 17792576 (Version 2)
Quarter: 2021Q1

REPORT INFORMATION
  Report Type: Spontaneous
  Country: US (occurrence: US)
  Receive Date: 20200515
  Receipt Date: 20210219
  Transmission Date: 20210419
  Serious: No
  Sender: FDA-Public Use
  Company Number: US-VERTEX PHARMACEUTICALS-2020-010839

PATIENT
  Sex: Female

DRUGS (10)
  1. DEKAS PLUS [Concomitant]
     Dosage: 1 DOSAGE FORM, QD (1 CAPSULE Q24H) 3 REFILLS
     Route: 048
  2. KITABIS PAK [Concomitant]
     Active Substance: TOBRAMYCIN
     Dosage: 300 MG, BID 60MG/ML, INHALATION SOLUTION, 3 REFILLS
  3. PROAIR HFA [Concomitant]
     Active Substance: ALBUTEROL SULFATE
     Dosage: 90 MICROGRAM/INH, PRN, INHALATION AEROSOL, 3 REFILLS
  4. ORKAMBI [Suspect]
     Active Substance: IVACAFTOR\LUMACAFTOR
     Indication: CYSTIC FIBROSIS
     Dosage: 2 TABLETS, BID, (EVERY 8?12 HOURS) 6 REFILLS
     Route: 048
     Dates: start: 20190827
  5. PRILOSEC [Concomitant]
     Active Substance: OMEPRAZOLE MAGNESIUM
  6. CREON [Concomitant]
     Active Substance: PANCRELIPASE AMYLASE\PANCRELIPASE LIPASE\PANCRELIPASE PROTEASE
     Indication: PANCREATIC FAILURE
     Dosage: 12,000 UNITS (PROTEASE?38,000 UNITS, AMYLASE?60,000 UNITS) AS DIRECTED 3 REFILLS
     Route: 048
  7. PULMOZYME [Concomitant]
     Active Substance: DORNASE ALFA
     Indication: RESPIRATORY DISORDER
     Dosage: 2.5 MG/2.5 ML, QD, 6 REFILLS
  8. SODIUM CHLORIDE. [Concomitant]
     Active Substance: SODIUM CHLORIDE
     Dosage: 3 %, 3 REFILLS
  9. ALBUTEROL [SALBUTAMOL] [Concomitant]
     Active Substance: ALBUTEROL
     Dosage: 0.083 % (2.5 MG/3 ML) INHALATION SOLUTION, PRN 3 REFILLS
  10. TOBRAMYCIN. [Concomitant]
     Active Substance: TOBRAMYCIN
     Indication: PSEUDOMONAS INFECTION
     Dosage: EVERY OTHER MONTH

REACTIONS (1)
  - Arthralgia [Unknown]
